FAERS Safety Report 21178606 (Version 2)
Quarter: 2023Q1

REPORT INFORMATION
  Report Type: Report from Study
  Country: US (occurrence: US)
  Receive Date: 20220805
  Receipt Date: 20230120
  Transmission Date: 20230418
  Serious: Yes (Other)
  Sender: FDA-Public Use
  Company Number: US-JAZZ-2022-US-013047

PATIENT
  Age: 35 Year
  Sex: Female

DRUGS (24)
  1. XYREM [Suspect]
     Active Substance: SODIUM OXYBATE
     Indication: Narcolepsy
     Dosage: UNK
     Dates: start: 2014
  2. XYREM [Suspect]
     Active Substance: SODIUM OXYBATE
     Indication: Cataplexy
  3. XYREM [Suspect]
     Active Substance: SODIUM OXYBATE
     Indication: Somnolence
  4. ALBUTEROL SULFATE [Concomitant]
     Active Substance: ALBUTEROL SULFATE
     Indication: Product used for unknown indication
     Dosage: UNK
     Dates: start: 20150925
  5. RESTASIS [Concomitant]
     Active Substance: CYCLOSPORINE
     Indication: Product used for unknown indication
     Dosage: UNK
     Dates: start: 20150924
  6. LEVBID [Concomitant]
     Active Substance: HYOSCYAMINE SULFATE
     Indication: Product used for unknown indication
     Dosage: UNK
     Dates: start: 20150925
  7. CRANBERRY + BUCHU [Concomitant]
     Indication: Product used for unknown indication
     Dosage: UNK
     Dates: start: 20150924
  8. EPINEPHRINE [Concomitant]
     Active Substance: EPINEPHRINE
     Indication: Product used for unknown indication
     Dosage: AUTO INJECT
     Dates: start: 20150925
  9. XYZAL [Concomitant]
     Active Substance: LEVOCETIRIZINE DIHYDROCHLORIDE
     Indication: Product used for unknown indication
     Dosage: UNK
     Dates: start: 20150925
  10. MAXALT [Concomitant]
     Active Substance: RIZATRIPTAN BENZOATE
     Indication: Product used for unknown indication
     Dosage: UNK
     Dates: start: 20150921
  11. TOPAMAX [Concomitant]
     Active Substance: TOPIRAMATE
     Indication: Product used for unknown indication
     Dosage: UNK
     Dates: start: 20150921
  12. METROCREAM [Concomitant]
     Active Substance: METRONIDAZOLE
     Indication: Product used for unknown indication
     Dosage: UNK
     Dates: start: 20150925
  13. FOCALIN XR [Concomitant]
     Active Substance: DEXMETHYLPHENIDATE HYDROCHLORIDE
     Indication: Narcolepsy
     Dosage: UNK
     Dates: start: 20150925
  14. DEPLIN [CALCIUM LEVOMEFOLATE] [Concomitant]
     Indication: Product used for unknown indication
     Dosage: UNK
     Dates: start: 20160513
  15. METHYLCOBALAMIN [Concomitant]
     Active Substance: METHYLCOBALAMIN
     Indication: Product used for unknown indication
     Dosage: UNK
     Dates: start: 20160520
  16. GABAPENTIN [Concomitant]
     Active Substance: GABAPENTIN
     Indication: Product used for unknown indication
     Dosage: UNK
     Dates: start: 20160624
  17. MINERALS\OMEGA-3 FATTY ACIDS\VITAMINS [Concomitant]
     Active Substance: MINERALS\OMEGA-3 FATTY ACIDS\VITAMINS
     Indication: Product used for unknown indication
     Dosage: CAPLET
     Dates: start: 20160401
  18. BENADRYL ALLERGY + COLD [Concomitant]
     Indication: Product used for unknown indication
     Dosage: ULTRATAB
     Dates: start: 19800101
  19. FLUOCINONIDE [Concomitant]
     Active Substance: FLUOCINONIDE
     Indication: Product used for unknown indication
     Dosage: UNK
     Dates: start: 20160422
  20. FOCALIN XR [Concomitant]
     Active Substance: DEXMETHYLPHENIDATE HYDROCHLORIDE
     Indication: Narcolepsy
     Dosage: UNK
     Dates: start: 20170401
  21. FOCALIN XR [Concomitant]
     Active Substance: DEXMETHYLPHENIDATE HYDROCHLORIDE
     Dosage: 25 MILLIGRAM
  22. METOPROLOL TARTRATE [Concomitant]
     Active Substance: METOPROLOL TARTRATE
     Indication: Product used for unknown indication
     Dosage: 0000
     Dates: start: 20171007
  23. ALEVE [Concomitant]
     Active Substance: NAPROXEN SODIUM
     Indication: Product used for unknown indication
     Dosage: CAPLET
     Dates: start: 20180808
  24. PROMETHAZINE [Concomitant]
     Active Substance: PROMETHAZINE HYDROCHLORIDE
     Indication: Product used for unknown indication
     Dosage: SUPPOSITORY
     Dates: start: 20220413

REACTIONS (3)
  - Hypothermia [Not Recovered/Not Resolved]
  - Pyrexia [Not Recovered/Not Resolved]
  - Sensory loss [Not Recovered/Not Resolved]

NARRATIVE: CASE EVENT DATE: 20150921
